FAERS Safety Report 18322071 (Version 2)
Quarter: 2020Q4

REPORT INFORMATION
  Report Type: Spontaneous
  Country: GR (occurrence: GR)
  Receive Date: 20200928
  Receipt Date: 20201013
  Transmission Date: 20210113
  Serious: Yes (Death, Life-Threatening, Hospitalization)
  Sender: FDA-Public Use
  Company Number: GR-CELGENEUS-GRC-20200906397

PATIENT
  Age: 62 Year
  Sex: Male
  Weight: 115 kg

DRUGS (14)
  1. LENALIDOMIDE [Suspect]
     Active Substance: LENALIDOMIDE
     Indication: PLASMA CELL MYELOMA
     Route: 048
     Dates: start: 20190704
  2. DARATUMUMAB [Concomitant]
     Active Substance: DARATUMUMAB
     Indication: PLASMA CELL MYELOMA
     Route: 058
     Dates: start: 20190604
  3. BORTEZOMIB. [Concomitant]
     Active Substance: BORTEZOMIB
     Route: 058
     Dates: start: 20190827
  4. DEXAMETHASONE. [Suspect]
     Active Substance: DEXAMETHASONE
     Indication: PLASMA CELL MYELOMA
     Route: 048
     Dates: start: 20190604
  5. BORTEZOMIB. [Concomitant]
     Active Substance: BORTEZOMIB
     Route: 058
     Dates: start: 20191031
  6. LENALIDOMIDE [Suspect]
     Active Substance: LENALIDOMIDE
     Route: 048
     Dates: start: 20190827
  7. LENALIDOMIDE [Suspect]
     Active Substance: LENALIDOMIDE
     Route: 048
     Dates: start: 20191119
  8. DEXAMETHASONE. [Suspect]
     Active Substance: DEXAMETHASONE
     Route: 048
     Dates: start: 20191119
  9. DARATUMUMAB [Concomitant]
     Active Substance: DARATUMUMAB
     Route: 058
     Dates: start: 20200804
  10. LENALIDOMIDE [Suspect]
     Active Substance: LENALIDOMIDE
     Route: 048
     Dates: start: 20190730
  11. DEXAMETHASONE. [Suspect]
     Active Substance: DEXAMETHASONE
     Route: 048
     Dates: start: 20200804
  12. BORTEZOMIB. [Concomitant]
     Active Substance: BORTEZOMIB
     Indication: PLASMA CELL MYELOMA
     Route: 058
     Dates: start: 20190604
  13. BORTEZOMIB. [Concomitant]
     Active Substance: BORTEZOMIB
     Route: 058
     Dates: start: 20190730
  14. LENALIDOMIDE [Suspect]
     Active Substance: LENALIDOMIDE
     Route: 048
     Dates: start: 20200809, end: 20200810

REACTIONS (2)
  - Tibia fracture [Fatal]
  - Septic shock [Fatal]

NARRATIVE: CASE EVENT DATE: 20200810
